FAERS Safety Report 4416070-0 (Version None)
Quarter: 2004Q3

REPORT INFORMATION
  Report Type: 
  Country: None (occurrence: None)
  Receive Date: 20040805
  Receipt Date: 20040429
  Transmission Date: 20050211
  Serious: Yes (Other)
  Sender: FDA-Public Use
  Company Number: PHBS2004BR05913

PATIENT
  Age: 63 Year
  Sex: Female
  Weight: 63 kg

DRUGS (1)
  1. ESTRADIOL [Suspect]
     Indication: HORMONE REPLACEMENT THERAPY
     Dosage: 1 DF, Q72H
     Route: 062
     Dates: start: 20031001

REACTIONS (4)
  - HAEMORRHAGE [None]
  - HOT FLUSH [None]
  - HYSTEROSALPINGO-OOPHORECTOMY [None]
  - UTERINE LEIOMYOMA [None]
